FAERS Safety Report 16527888 (Version 2)
Quarter: 2019Q3

REPORT INFORMATION
  Report Type: Spontaneous
  Country: NL (occurrence: NL)
  Receive Date: 20190703
  Receipt Date: 20190722
  Transmission Date: 20191004
  Serious: Yes (Other)
  Sender: FDA-Public Use
  Company Number: NL-BAYER-2019-121700

PATIENT
  Age: 66 Year
  Sex: Male

DRUGS (10)
  1. XOFIGO [Suspect]
     Active Substance: RADIUM RA-223 DICHLORIDE
     Indication: HORMONE-REFRACTORY PROSTATE CANCER
     Dosage: UNK
     Dates: start: 20190411
  2. MACROGOL [Concomitant]
     Active Substance: POLYETHYLENE GLYCOLS
     Dosage: UNK
  3. NAPROXEN AUROBINDO [Concomitant]
     Active Substance: NAPROXEN
     Dosage: 500 MG
  4. TRANEXAMINEZUUR [Concomitant]
     Dosage: 50 MG/ML
  5. VITAMIN D [VITAMIN D NOS] [Concomitant]
     Active Substance: VITAMIN D NOS
     Dosage: UNK
  6. COLECALCIFEROL BENFEROL [Concomitant]
     Dosage: 5600IE
  7. OXYCODON [Concomitant]
     Active Substance: OXYCODONE
     Dosage: 5 MG
  8. PANTOPRAZOL AUROBINDO [Concomitant]
     Active Substance: PANTOPRAZOLE SODIUM
     Dosage: 20 MG
  9. XOFIGO [Suspect]
     Active Substance: RADIUM RA-223 DICHLORIDE
     Indication: HORMONE-REFRACTORY PROSTATE CANCER
     Dosage: UNK
     Dates: start: 20190606
  10. XOFIGO [Suspect]
     Active Substance: RADIUM RA-223 DICHLORIDE
     Indication: HORMONE-REFRACTORY PROSTATE CANCER
     Dosage: UNK
     Dates: start: 20190509

REACTIONS (1)
  - Pathological fracture [Recovered/Resolved]

NARRATIVE: CASE EVENT DATE: 20190621
